FAERS Safety Report 10306351 (Version 2)
Quarter: 2014Q3

REPORT INFORMATION
  Report Type: Spontaneous
  Country: IT (occurrence: None)
  Receive Date: 20140711
  Receipt Date: 20140723
  Transmission Date: 20150326
  Serious: Yes (Other)
  Sender: FDA-Public Use
  Company Number: 2014-IT-008033

PATIENT
  Age: 51 Year
  Sex: Male

DRUGS (4)
  1. PREDNISONE. [Concomitant]
     Active Substance: PREDNISONE
  2. DAUNORUBICIN [Concomitant]
     Active Substance: DAUNORUBICIN
  3. ERWINASE [Suspect]
     Active Substance: ASPARAGINASE ERWINIA CHRYSANTHEMI
     Indication: B PRECURSOR TYPE ACUTE LEUKAEMIA
     Dosage: 6000 IU/M2
     Route: 042
  4. VINCRISTINE [Concomitant]
     Active Substance: VINCRISTINE

REACTIONS (5)
  - Thrombophlebitis superficial [None]
  - Pancreatitis [None]
  - Pancreatic disorder [None]
  - Hyperglycaemia [None]
  - Hepatotoxicity [None]
